FAERS Safety Report 6398557-7 (Version None)
Quarter: 2009Q4

REPORT INFORMATION
  Report Type: 
  Country: None (occurrence: None)
  Receive Date: 20091013
  Receipt Date: 20091009
  Transmission Date: 20100525
  Serious: Yes (Life-Threatening, Hospitalization, Other)
  Sender: FDA-Public Use
  Company Number: US-BAYER-200917289NA

PATIENT
  Age: 70 Year
  Sex: Female
  Weight: 45 kg

DRUGS (19)
  1. SORAFENIB [Suspect]
     Indication: PANCREATIC CARCINOMA NON-RESECTABLE
     Dosage: TOTAL DAILY DOSE: 400 MG  UNIT DOSE: 200 MG
     Route: 048
     Dates: start: 20090327, end: 20090330
  2. SORAFENIB [Suspect]
     Dosage: TOTAL DAILY DOSE: 800 MG  UNIT DOSE: 200 MG
     Route: 048
     Dates: start: 20090324, end: 20090326
  3. SORAFENIB [Suspect]
     Dosage: TOTAL DAILY DOSE: 400 MG  UNIT DOSE: 200 MG
     Route: 048
     Dates: start: 20090406, end: 20090702
  4. GEMCITABINE [Suspect]
     Indication: PANCREATIC CARCINOMA NON-RESECTABLE
     Dosage: TOTAL DAILY DOSE: 1000 MG/M2
     Route: 042
     Dates: start: 20090324, end: 20090330
  5. GEMCITABINE [Suspect]
     Dosage: DOSE REDUCED FROM 1,650 MG TO 1,288 MG
     Route: 042
     Dates: start: 20090406, end: 20090518
  6. METOPROLOL [Concomitant]
     Dosage: TOTAL DAILY DOSE: 12.5 MG
     Route: 048
  7. LIPITOR [Concomitant]
     Dosage: TOTAL DAILY DOSE: 40 MG  UNIT DOSE: 40 MG
     Route: 048
  8. PANTOPRAZOLE SODIUM [Concomitant]
     Dosage: TOTAL DAILY DOSE: 40 MG  UNIT DOSE: 40 MG
     Route: 048
  9. THIAMINE HCL [Concomitant]
     Dosage: TOTAL DAILY DOSE: 100 MG  UNIT DOSE: 100 MG
     Route: 048
  10. POTASSIUM CHLORIDE [Concomitant]
  11. M.V.I. [Concomitant]
  12. VIT E [Concomitant]
  13. HYDROCODONE BITARTRATE AND ACETAMINOPHEN [Concomitant]
     Indication: PAIN
     Dosage: 10/325MG 1 Q6HR
     Route: 048
  14. MORPHINE SULFATE [Concomitant]
     Dosage: TOTAL DAILY DOSE: 30 MG  UNIT DOSE: 15 MG
     Route: 048
  15. CALCIUM CITRATE WITH VIT D [Concomitant]
  16. SCOPOLAMINE [Concomitant]
     Dosage: AS USED: 1.5 MG
  17. ZOFRAN ODT [Concomitant]
     Dosage: AS USED: 4 MG  UNIT DOSE: 4 MG
  18. VAGIFEM [Concomitant]
  19. GARLIC [Concomitant]

REACTIONS (6)
  - ACUTE MYELOID LEUKAEMIA [None]
  - DEHYDRATION [None]
  - NAUSEA [None]
  - PNEUMONIA [None]
  - VOMITING [None]
  - WEIGHT DECREASED [None]
